FAERS Safety Report 16211822 (Version 1)
Quarter: 2019Q2

REPORT INFORMATION
  Report Type: Spontaneous
  Country: PT (occurrence: PT)
  Receive Date: 20190418
  Receipt Date: 20190418
  Transmission Date: 20190711
  Serious: Yes (Hospitalization, Other)
  Sender: FDA-Public Use
  Company Number: PT-AUROBINDO-AUR-APL-2019-020219

PATIENT

DRUGS (3)
  1. PERINDOPRIL [Suspect]
     Active Substance: PERINDOPRIL
     Indication: PRODUCT USED FOR UNKNOWN INDICATION
     Dosage: UNK
     Route: 065
  2. METHOTREXATE. [Concomitant]
     Active Substance: METHOTREXATE
     Indication: PRODUCT USED FOR UNKNOWN INDICATION
     Dosage: UNK
     Route: 065
  3. LEVOTHYROXINE. [Concomitant]
     Active Substance: LEVOTHYROXINE
     Indication: PRODUCT USED FOR UNKNOWN INDICATION
     Dosage: UNK
     Route: 065

REACTIONS (16)
  - Metastases to uterus [Recovering/Resolving]
  - Weight decreased [Recovering/Resolving]
  - Abdominal pain upper [Recovering/Resolving]
  - Deficiency of bile secretion [Recovering/Resolving]
  - Metastases to gastrointestinal tract [Recovering/Resolving]
  - Decreased appetite [Recovering/Resolving]
  - Choluria [Recovering/Resolving]
  - Pruritus [Recovering/Resolving]
  - Metastases to lung [Recovering/Resolving]
  - Non-Hodgkin^s lymphoma [Recovering/Resolving]
  - Metastases to kidney [Recovering/Resolving]
  - Asthenia [Recovering/Resolving]
  - Jaundice [Recovering/Resolving]
  - Metastases to adrenals [Recovering/Resolving]
  - Vomiting [Recovering/Resolving]
  - Normochromic normocytic anaemia [Recovering/Resolving]
